FAERS Safety Report 9747595 (Version 1)
Quarter: 2013Q4

REPORT INFORMATION
  Report Type: Spontaneous
  Country: US (occurrence: None)
  Receive Date: 20131205
  Receipt Date: 20131205
  Transmission Date: 20140711
  Serious: Yes (Hospitalization)
  Sender: FDA-Public Use
  Company Number: AUR-APL-2013-10048

PATIENT
  Age: 67 Year
  Sex: Female

DRUGS (4)
  1. CARVEDILOL (CARVEDILOL) [Suspect]
     Indication: PRODUCT USED FOR UNKNOWN INDICATION
     Dosage: 6.25 MG (3.125 MG, 2 IN 1 ), UNKNOWN
  2. AMLODIPINE (AMLODIPINE) [Concomitant]
  3. ASPIRIN (ACETYLSALICYLIC ACID) [Concomitant]
  4. LEOVTHYROXINE (LEVOTHYROXINE) [Concomitant]

REACTIONS (10)
  - Nausea [None]
  - Fatigue [None]
  - Chromaturia [None]
  - Change of bowel habit [None]
  - Pyrexia [None]
  - Weight decreased [None]
  - Liver injury [None]
  - Hepatic necrosis [None]
  - Abdominal pain [None]
  - Ocular icterus [None]
